FAERS Safety Report 5140724-4 (Version None)
Quarter: 2006Q4

REPORT INFORMATION
  Report Type: 
  Country: None (occurrence: None)
  Receive Date: 20061025
  Receipt Date: 20061016
  Transmission Date: 20070319
  Serious: Yes (Hospitalization)
  Sender: FDA-Public Use
  Company Number: RB-4189-2006

PATIENT
  Age: 22 Year
  Sex: Male

DRUGS (1)
  1. SUBUTEX [Suspect]
     Indication: DRUG DEPENDENCE
     Dosage: 4 MG, 8 MG, 16 MG
     Route: 060
     Dates: start: 20060811

REACTIONS (5)
  - ANAEMIA [None]
  - CARDIAC MURMUR [None]
  - FALL [None]
  - HEAD INJURY [None]
  - HEADACHE [None]
